FAERS Safety Report 25753854 (Version 1)
Quarter: 2025Q3

REPORT INFORMATION
  Report Type: 
  Country: CN (occurrence: CN)
  Receive Date: 20250903
  Receipt Date: 20250903
  Transmission Date: 20251020
  Serious: Yes (Life-Threatening, Hospitalization)
  Sender: JIANGSU HANSOH PHARMACEUTICAL GROUP CO., LTD.
  Company Number: CN-Hansoh-20252190015768

PATIENT
  Age: 62 Year
  Sex: Male

DRUGS (4)
  1. AZACITIDINE [Suspect]
     Active Substance: AZACITIDINE
     Indication: Acute myeloid leukaemia
     Dosage: 100MG,QD
     Route: 058
     Dates: start: 20250710, end: 20250717
  2. ACLARUBICIN HYDROCHLORIDE [Suspect]
     Active Substance: ACLARUBICIN HYDROCHLORIDE
     Indication: Acute myeloid leukaemia
     Dosage: 20MG,QD
     Route: 041
     Dates: start: 20250710, end: 20250714
  3. CYTARABINE [Suspect]
     Active Substance: CYTARABINE
     Indication: Acute myeloid leukaemia
     Dosage: 17MG,QD
     Route: 058
     Dates: start: 20250710, end: 20250718
  4. CYTARABINE [Suspect]
     Active Substance: CYTARABINE
     Dosage: 18MG,ONCE EVERY NIGHT
     Route: 058
     Dates: start: 20250710, end: 20250718

REACTIONS (1)
  - Myelosuppression [Not Recovered/Not Resolved]

NARRATIVE: CASE EVENT DATE: 20250720
